FAERS Safety Report 5978687-1 (Version None)
Quarter: 2008Q4

REPORT INFORMATION
  Report Type: 
  Country: None (occurrence: None)
  Receive Date: 20081126
  Receipt Date: 20080807
  Transmission Date: 20090506
  Serious: Yes (Other)
  Sender: FDA-Public Use
  Company Number: 2008US001996

PATIENT
  Sex: Male

DRUGS (1)
  1. PROTOPIC [Suspect]
     Indication: ECZEMA
     Route: 061
     Dates: start: 20020101

REACTIONS (1)
  - TESTIS CANCER [None]
